FAERS Safety Report 8386531-0 (Version None)
Quarter: 2012Q2

REPORT INFORMATION
  Report Type: 
  Country: None (occurrence: None)
  Receive Date: 20120525
  Receipt Date: 20110516
  Transmission Date: 20120825
  Serious: No
  Sender: FDA-Public Use
  Company Number: US-GLAXOSMITHKLINE-A0927518A

PATIENT
  Age: 61 Year
  Sex: Female

DRUGS (4)
  1. ZYRTEC [Suspect]
     Indication: MULTIPLE ALLERGIES
     Dosage: 10MG PER DAY
     Route: 048
     Dates: start: 20110502, end: 20110512
  2. VERAMYST [Suspect]
     Indication: RHINITIS ALLERGIC
     Dosage: 2SPR PER DAY
     Route: 045
     Dates: start: 20110509
  3. TRIAMTERENE AND HYDROCHLOROTHIAZIDE [Concomitant]
  4. CRESTOR [Concomitant]

REACTIONS (4)
  - FATIGUE [None]
  - LACRIMATION INCREASED [None]
  - SOMNOLENCE [None]
  - VISION BLURRED [None]
